APPROVED DRUG PRODUCT: VASOSTRICT
Active Ingredient: VASOPRESSIN
Strength: 200UNITS/10ML (20UNITS/ML)
Dosage Form/Route: SOLUTION;INTRAVENOUS
Application: N204485 | Product #002
Applicant: PH HEALTH LTD
Approved: Dec 17, 2016 | RLD: Yes | RS: Yes | Type: RX

PATENTS:
Patent 9375478 | Expires: Jan 30, 2035
Patent 9937223 | Expires: Jan 30, 2035
Patent 9744239 | Expires: Jan 30, 2035
Patent 9744209 | Expires: Jan 30, 2035
Patent 9687526 | Expires: Jan 30, 2035
Patent 9750785 | Expires: Jan 30, 2035